FAERS Safety Report 10330352 (Version 7)
Quarter: 2014Q4

REPORT INFORMATION
  Report Type: Report from Study
  Country: FR (occurrence: FR)
  Receive Date: 20140722
  Receipt Date: 20141120
  Transmission Date: 20150528
  Serious: Yes (Other)
  Sender: FDA-Public Use
  Company Number: FR-ROCHE-1434921

PATIENT
  Age: 73 Year
  Sex: Male
  Weight: 92 kg

DRUGS (14)
  1. VISMODEGIB [Suspect]
     Active Substance: VISMODEGIB
     Indication: BASAL CELL CARCINOMA
     Dosage: MOST RECENT DOSE PRIOR TO THE EVENT: 26/JAN/2014
     Route: 048
     Dates: start: 20120130
  2. FLUVASTATIN [Concomitant]
     Active Substance: FLUVASTATIN SODIUM
     Indication: MYOCARDIAL ISCHAEMIA
     Route: 065
     Dates: start: 200501
  3. FLUIMICIL [Concomitant]
     Indication: RHINITIS ALLERGIC
     Route: 065
     Dates: start: 200801
  4. SECTRAL [Concomitant]
     Active Substance: ACEBUTOLOL HYDROCHLORIDE
     Indication: MYOCARDIAL ISCHAEMIA
     Route: 065
     Dates: start: 200501
  5. KARDEGIC [Concomitant]
     Active Substance: ASPIRIN LYSINE
     Indication: MYOCARDIAL ISCHAEMIA
     Route: 065
     Dates: start: 200501
  6. XANAX [Concomitant]
     Active Substance: ALPRAZOLAM
     Indication: ANXIETY
     Route: 065
     Dates: start: 200501
  7. DISCOTRINE [Concomitant]
     Active Substance: NITROGLYCERIN
     Indication: MYOCARDIAL ISCHAEMIA
     Route: 065
     Dates: start: 200501
  8. SKENAN [Concomitant]
     Active Substance: MORPHINE SULFATE
     Route: 065
     Dates: start: 198201
  9. TARDYFERON (FRANCE) [Concomitant]
     Indication: IRON DEFICIENCY
     Route: 065
     Dates: start: 201101
  10. RENITEC [Concomitant]
     Active Substance: ENALAPRIL MALEATE
     Indication: MYOCARDIAL ISCHAEMIA
     Route: 065
     Dates: start: 200501
  11. INEXIUM [Concomitant]
     Active Substance: ESOMEPRAZOLE
     Route: 065
     Dates: start: 200501
  12. ADANCOR [Concomitant]
     Active Substance: NICORANDIL
     Indication: ANGINA PECTORIS
     Route: 065
     Dates: start: 198601
  13. CLAMOXYL (FRANCE) [Concomitant]
     Active Substance: AMOXICILLIN\CLAVULANIC ACID
     Indication: BRONCHITIS
     Route: 065
     Dates: start: 20131001, end: 20131007
  14. VOGALENE [Concomitant]
     Active Substance: METOPIMAZINE
     Indication: GASTROENTERITIS
     Route: 065
     Dates: start: 20131001, end: 20131004

REACTIONS (1)
  - B-cell lymphoma [Recovered/Resolved]

NARRATIVE: CASE EVENT DATE: 20140127
